FAERS Safety Report 23162090 (Version 3)
Quarter: 2023Q4

REPORT INFORMATION
  Report Type: Report from Study
  Country: JP (occurrence: JP)
  Receive Date: 20231109
  Receipt Date: 20231229
  Transmission Date: 20240110
  Serious: Yes (Death, Life-Threatening, Hospitalization)
  Sender: FDA-Public Use
  Company Number: JP-ABBVIE-5488110

PATIENT
  Age: 70 Year
  Sex: Male
  Weight: 52 kg

DRUGS (21)
  1. VENCLEXTA [Suspect]
     Active Substance: VENETOCLAX
     Indication: Acute myeloid leukaemia
     Dosage: 200 MILLIGRAM/LAST ADMIN DATE -04/2021
     Route: 048
     Dates: start: 20210423
  2. VENCLEXTA [Suspect]
     Active Substance: VENETOCLAX
     Indication: Acute myeloid leukaemia
     Dosage: 600 MILLIGRAM
     Route: 048
     Dates: start: 20220720, end: 20220728
  3. VENCLEXTA [Suspect]
     Active Substance: VENETOCLAX
     Indication: Acute myeloid leukaemia
     Dosage: 50 MILLIGRAM
     Route: 048
     Dates: start: 20220329, end: 20220331
  4. VENCLEXTA [Suspect]
     Active Substance: VENETOCLAX
     Indication: Acute myeloid leukaemia
     Dosage: 600 MILLIGRAM/LAST ADMIN DATE-2022
     Route: 048
     Dates: start: 20220621
  5. VENCLEXTA [Suspect]
     Active Substance: VENETOCLAX
     Indication: Acute myeloid leukaemia
     Dosage: 400 MILLIGRAM/ LAST ADMIN DATE-04/2021
     Route: 048
     Dates: start: 20210424
  6. VENCLEXTA [Suspect]
     Active Substance: VENETOCLAX
     Indication: Acute myeloid leukaemia
     Dosage: 100 MILLIGRAM; LAST DATE-04/2021
     Route: 048
     Dates: start: 20210422
  7. VENCLEXTA [Suspect]
     Active Substance: VENETOCLAX
     Indication: Acute myeloid leukaemia
     Dosage: 600 MILLIGRAM
     Route: 048
     Dates: start: 20220524
  8. VENCLEXTA [Suspect]
     Active Substance: VENETOCLAX
     Indication: Acute myeloid leukaemia
     Dosage: 50 MILLIGRAM/LAST ADMIN DATE-2022
     Route: 048
     Dates: start: 20220228
  9. VENCLEXTA [Suspect]
     Active Substance: VENETOCLAX
     Indication: Acute myeloid leukaemia
     Dosage: 600 MILLIGRAM/LAST ADMIN DATE-04/2022
     Route: 048
     Dates: start: 20220401
  10. VENCLEXTA [Suspect]
     Active Substance: VENETOCLAX
     Indication: Acute myeloid leukaemia
     Dosage: 600 MILLIGRAM/LAST ADMIN DATE-2022
     Route: 048
     Dates: start: 20220426
  11. VENCLEXTA [Suspect]
     Active Substance: VENETOCLAX
     Indication: Acute myeloid leukaemia
     Dosage: 50 MILLIGRAM
     Route: 048
     Dates: start: 20211019
  12. VENCLEXTA [Suspect]
     Active Substance: VENETOCLAX
     Indication: Acute myeloid leukaemia
     Dosage: 600 MILLIGRAM
     Route: 048
     Dates: start: 20210425, end: 20210519
  13. FILGRASTIM [Concomitant]
     Active Substance: FILGRASTIM
     Indication: Colony stimulating factor therapy
     Dates: start: 20210501, end: 20210506
  14. CYTARABINE [Suspect]
     Active Substance: CYTARABINE
     Indication: Acute myeloid leukaemia
     Dosage: LOW DOSE
     Route: 065
     Dates: start: 20220329, end: 20220402
  15. CYTARABINE [Suspect]
     Active Substance: CYTARABINE
     Indication: Acute myeloid leukaemia
     Dosage: LOW DOSE
     Route: 065
     Dates: start: 20220720, end: 20220724
  16. CYTARABINE [Suspect]
     Active Substance: CYTARABINE
     Indication: Acute myeloid leukaemia
     Dosage: LOW DOSE
     Route: 065
     Dates: start: 20211019, end: 20211028
  17. CYTARABINE [Suspect]
     Active Substance: CYTARABINE
     Indication: Acute myeloid leukaemia
     Dosage: LOW DOSE
     Route: 065
     Dates: start: 20220228, end: 20220304
  18. CYTARABINE [Suspect]
     Active Substance: CYTARABINE
     Indication: Acute myeloid leukaemia
     Dosage: LOW DOSE
     Route: 065
     Dates: start: 20220621, end: 20220625
  19. CYTARABINE [Suspect]
     Active Substance: CYTARABINE
     Indication: Acute myeloid leukaemia
     Dosage: LOW DOSE
     Route: 065
     Dates: start: 20220426, end: 20220430
  20. CYTARABINE [Suspect]
     Active Substance: CYTARABINE
     Indication: Acute myeloid leukaemia
     Dosage: LOW DOSE
     Route: 065
     Dates: start: 20220524, end: 20220528
  21. CYTARABINE [Suspect]
     Active Substance: CYTARABINE
     Indication: Acute myeloid leukaemia
     Dosage: LOW DOSE
     Route: 065
     Dates: start: 20210422, end: 20210501

REACTIONS (5)
  - Liver disorder [Fatal]
  - Sepsis [Recovering/Resolving]
  - Neutrophil count decreased [Recovered/Resolved]
  - Bronchopulmonary aspergillosis [Recovered/Resolved]
  - Platelet count decreased [Recovered/Resolved]

NARRATIVE: CASE EVENT DATE: 20210425
